FAERS Safety Report 24917008 (Version 2)
Quarter: 2025Q2

REPORT INFORMATION
  Report Type: Spontaneous
  Country: US (occurrence: US)
  Receive Date: 20250203
  Receipt Date: 20250411
  Transmission Date: 20250717
  Serious: Yes (Other)
  Sender: TORRENT
  Company Number: US-TORRENT-00014194

PATIENT
  Age: 21 Year
  Sex: Male

DRUGS (1)
  1. DICHLORPHENAMIDE [Suspect]
     Active Substance: DICHLORPHENAMIDE
     Indication: Product used for unknown indication
     Route: 065

REACTIONS (2)
  - Paralysis [Unknown]
  - Treatment failure [Unknown]
